FAERS Safety Report 22950271 (Version 2)
Quarter: 2023Q4

REPORT INFORMATION
  Report Type: Report from Study
  Country: US (occurrence: US)
  Receive Date: 20230915
  Receipt Date: 20231215
  Transmission Date: 20240109
  Serious: Yes (Hospitalization, Other)
  Sender: FDA-Public Use
  Company Number: US-ALXN-A202311218

PATIENT
  Sex: Female

DRUGS (4)
  1. ULTOMIRIS [Suspect]
     Active Substance: RAVULIZUMAB-CWVZ
     Indication: Myasthenia gravis
     Dosage: UNK
     Route: 065
     Dates: start: 20230824
  2. ROCEPHIN [Concomitant]
     Active Substance: CEFTRIAXONE SODIUM
     Indication: Prophylaxis
     Dosage: UNK
     Route: 065
  3. HUMAN IMMUNOGLOBULIN G [Concomitant]
     Active Substance: HUMAN IMMUNOGLOBULIN G
     Indication: Product used for unknown indication
     Dosage: UNK
     Route: 042
  4. BENADRYL [Concomitant]
     Active Substance: DIPHENHYDRAMINE HYDROCHLORIDE
     Indication: Product used for unknown indication
     Dosage: UNK
     Route: 065

REACTIONS (5)
  - Neck pain [Unknown]
  - Musculoskeletal stiffness [Unknown]
  - Myasthenia gravis [Unknown]
  - Pyrexia [Unknown]
  - Headache [Recovered/Resolved]

NARRATIVE: CASE EVENT DATE: 20230824
